FAERS Safety Report 23150603 (Version 1)
Quarter: 2023Q4

REPORT INFORMATION
  Report Type: Spontaneous
  Country: CN (occurrence: CN)
  Receive Date: 20231106
  Receipt Date: 20231106
  Transmission Date: 20240110
  Serious: Yes (Life-Threatening, Other)
  Sender: FDA-Public Use
  Company Number: CN-PFIZER INC-PV202300178980

PATIENT
  Age: 49 Year
  Sex: Female

DRUGS (10)
  1. CYTARABINE [Suspect]
     Active Substance: CYTARABINE
     Indication: Acute lymphocytic leukaemia
     Dosage: 0.05 G, Q.D
     Route: 037
     Dates: start: 20231007, end: 20231007
  2. METHOTREXATE SODIUM [Suspect]
     Active Substance: METHOTREXATE SODIUM
     Indication: Acute lymphocytic leukaemia
     Dosage: 10 MG, Q.D
     Route: 037
     Dates: start: 20231007, end: 20231007
  3. METHOTREXATE SODIUM [Suspect]
     Active Substance: METHOTREXATE SODIUM
     Indication: Acute lymphocytic leukaemia
     Dosage: 100 MG, ONCE EVERY 3 DAYS
     Route: 041
     Dates: start: 20231009, end: 20231012
  4. METHOTREXATE SODIUM [Suspect]
     Active Substance: METHOTREXATE SODIUM
     Dosage: 50 MG, Q.D
     Route: 041
     Dates: start: 20231016, end: 20231016
  5. VINDESINE SULFATE [Suspect]
     Active Substance: VINDESINE SULFATE
     Indication: Acute lymphocytic leukaemia
     Dosage: 4 MG, WEEKLY
     Route: 042
     Dates: start: 20231009, end: 20231016
  6. DEXAMETHASONE SODIUM PHOSPHATE [Concomitant]
     Active Substance: DEXAMETHASONE SODIUM PHOSPHATE
     Indication: Acute lymphocytic leukaemia
     Dosage: 5 MG, Q.D
     Route: 037
     Dates: start: 20231007, end: 20231007
  7. SODIUM CHLORIDE [Concomitant]
     Active Substance: SODIUM CHLORIDE
     Indication: Vehicle solution use
     Dosage: 3 ML, Q.D
     Route: 037
     Dates: start: 20231007, end: 20231007
  8. SODIUM CHLORIDE [Concomitant]
     Active Substance: SODIUM CHLORIDE
     Indication: Vehicle solution use
     Dosage: 100 ML, ONCE EVERY 3 DAYS
     Route: 041
     Dates: start: 20231009, end: 20231012
  9. SODIUM CHLORIDE [Concomitant]
     Active Substance: SODIUM CHLORIDE
     Dosage: 20 ML, WEEKLY
     Route: 042
     Dates: start: 20231009, end: 20231016
  10. SODIUM CHLORIDE [Concomitant]
     Active Substance: SODIUM CHLORIDE
     Dosage: 50 ML, Q.D
     Route: 041
     Dates: start: 20231016, end: 20231016

REACTIONS (5)
  - Mouth ulceration [Recovering/Resolving]
  - Myelosuppression [Not Recovered/Not Resolved]
  - Oropharyngeal discomfort [Unknown]
  - Oral pain [Recovering/Resolving]
  - Extravasation blood [Unknown]

NARRATIVE: CASE EVENT DATE: 20231001
